FAERS Safety Report 24706087 (Version 2)
Quarter: 2024Q4

REPORT INFORMATION
  Report Type: Report from Study
  Country: US (occurrence: US)
  Receive Date: 20241206
  Receipt Date: 20241212
  Transmission Date: 20250115
  Serious: Yes (Other)
  Sender: ALEXION PHARMACEUTICALS
  Company Number: US-AstraZeneca-CH-00761046A

PATIENT
  Age: 64 Year

DRUGS (4)
  1. OLAPARIB [Suspect]
     Active Substance: OLAPARIB
     Route: 065
  2. OLAPARIB [Suspect]
     Active Substance: OLAPARIB
     Route: 065
  3. OLAPARIB [Suspect]
     Active Substance: OLAPARIB
     Route: 065
  4. OLAPARIB [Suspect]
     Active Substance: OLAPARIB
     Route: 065

REACTIONS (4)
  - Uveal melanoma [Unknown]
  - Tumour marker increased [Unknown]
  - Gene mutation [Unknown]
  - Disease progression [Unknown]
